FAERS Safety Report 8564953-2 (Version None)
Quarter: 2012Q3

REPORT INFORMATION
  Report Type: 
  Country: None (occurrence: None)
  Receive Date: 20120803
  Receipt Date: 20120720
  Transmission Date: 20120928
  Serious: Yes (Hospitalization, Other)
  Sender: FDA-Public Use
  Company Number: US-ROCHE-1064964

PATIENT

DRUGS (1)
  1. SOMATROPIN RDNA [Suspect]
     Indication: PRODUCT USED FOR UNKNOWN INDICATION
     Route: 058

REACTIONS (7)
  - INJECTION SITE PAIN [None]
  - PHARYNGITIS STREPTOCOCCAL [None]
  - HENOCH-SCHONLEIN PURPURA [None]
  - HEART RATE INCREASED [None]
  - RASH [None]
  - JOINT SWELLING [None]
  - HYPERTENSION [None]
